FAERS Safety Report 16903287 (Version 1)
Quarter: 2019Q4

REPORT INFORMATION
  Report Type: Spontaneous
  Country: US (occurrence: US)
  Receive Date: 20191010
  Receipt Date: 20191010
  Transmission Date: 20200122
  Serious: No
  Sender: FDA-Public Use
  Company Number: US-AMAG PHARMACEUTICALS, INC.-AMAG201905061

PATIENT

DRUGS (2)
  1. VYLEESI [Suspect]
     Active Substance: BREMELANOTIDE ACETATE
     Indication: PRODUCT USED FOR UNKNOWN INDICATION
     Route: 058
  2. BUPROPION. [Concomitant]
     Active Substance: BUPROPION
     Indication: PRODUCT USED FOR UNKNOWN INDICATION
     Route: 065

REACTIONS (13)
  - Food refusal [Unknown]
  - Gait inability [Unknown]
  - Muscle rigidity [Unknown]
  - Blood pressure increased [Unknown]
  - Flushing [Unknown]
  - Nasal congestion [Unknown]
  - Disturbance in sexual arousal [Unknown]
  - Headache [Unknown]
  - Vomiting [Unknown]
  - Nausea [Unknown]
  - Heart rate decreased [Unknown]
  - Fatigue [Unknown]
  - Throat irritation [Unknown]
